FAERS Safety Report 25537340 (Version 1)
Quarter: 2025Q3

REPORT INFORMATION
  Report Type: Spontaneous
  Country: EU (occurrence: EU)
  Receive Date: 20250710
  Receipt Date: 20250710
  Transmission Date: 20251021
  Serious: Yes (Disabling)
  Sender: NOVO NORDISK
  Company Number: None

PATIENT
  Age: 60 Year
  Sex: Female
  Weight: 100 kg

DRUGS (9)
  1. NAPROXEN [Concomitant]
     Active Substance: NAPROXEN
  2. OZEMPIC [Suspect]
     Active Substance: SEMAGLUTIDE
     Indication: Type 2 diabetes mellitus
     Dosage: 0.25 MG, QW
     Dates: start: 20240228
  3. OZEMPIC [Suspect]
     Active Substance: SEMAGLUTIDE
     Indication: Weight control
     Dosage: 1 MG, QW
     Dates: start: 202403, end: 20240509
  4. OMEPRAZOLE [Concomitant]
     Active Substance: OMEPRAZOLE
  5. BUDESONIDE [Concomitant]
     Active Substance: BUDESONIDE
  6. CANDESARTAN CILEXETIL\HYDROCHLOROTHIAZIDE [Concomitant]
     Active Substance: CANDESARTAN CILEXETIL\HYDROCHLOROTHIAZIDE
  7. ESTRADIOL [Concomitant]
     Active Substance: ESTRADIOL
     Dates: start: 20250225
  8. LEVOTHYROXINE SODIUM [Concomitant]
     Active Substance: LEVOTHYROXINE SODIUM
  9. PROVERA [Concomitant]
     Active Substance: MEDROXYPROGESTERONE ACETATE
     Dates: start: 20250225

REACTIONS (28)
  - Agoraphobia [Unknown]
  - Hypoxia [Unknown]
  - Condition aggravated [Unknown]
  - Choking [Unknown]
  - Condition aggravated [Unknown]
  - Cold sweat [Unknown]
  - Condition aggravated [Unknown]
  - Tinnitus [Unknown]
  - Cough [Unknown]
  - Condition aggravated [Unknown]
  - Pain [Unknown]
  - Dyspnoea [Unknown]
  - Condition aggravated [Unknown]
  - Hypoxia [Unknown]
  - Tinnitus [Unknown]
  - Anger [Unknown]
  - Choking [Unknown]
  - Cold sweat [Unknown]
  - Dyspnoea [Unknown]
  - Cough [Unknown]
  - Depressed mood [Unknown]
  - Pain [Unknown]
  - Affect lability [Unknown]
  - Nausea [Recovered/Resolved]
  - Dizziness [Unknown]
  - Decreased appetite [Recovered/Resolved]
  - Fatigue [Unknown]
  - Dizziness [Unknown]

NARRATIVE: CASE EVENT DATE: 20240101
